FAERS Safety Report 7986874-6 (Version None)
Quarter: 2011Q4

REPORT INFORMATION
  Report Type: 
  Country: None (occurrence: None)
  Receive Date: 20111216
  Receipt Date: 20111213
  Transmission Date: 20120403
  Serious: Yes (Life-Threatening, Other)
  Sender: FDA-Public Use
  Company Number: BR-BAYER-2011-119747

PATIENT
  Age: 56 Year
  Sex: Female

DRUGS (3)
  1. METOPROLOL TARTRATE [Concomitant]
     Dosage: 5 DF, UNK
     Route: 042
  2. ULTRAVIST 150 [Suspect]
     Indication: COMPUTERISED TOMOGRAM
     Dosage: 85 ML, ONCE
     Route: 042
     Dates: start: 20111207, end: 20111207
  3. VERAPAMIL [Concomitant]
     Dosage: 1 DF, UNK
     Route: 042

REACTIONS (5)
  - PARAESTHESIA ORAL [None]
  - THROAT IRRITATION [None]
  - OCULAR HYPERAEMIA [None]
  - ERYTHEMA [None]
  - HYPERSENSITIVITY [None]
